FAERS Safety Report 25239647 (Version 1)
Quarter: 2025Q2

REPORT INFORMATION
  Report Type: Spontaneous
  Country: US (occurrence: US)
  Receive Date: 20250425
  Receipt Date: 20250425
  Transmission Date: 20250717
  Serious: No
  Sender: BAYER HEALTHCARE PHARMACEUTICALS INC.
  Company Number: US-BAYER-2025A053999

PATIENT
  Age: 82 Year
  Sex: Female
  Weight: 54.422 kg

DRUGS (18)
  1. ADEMPAS [Suspect]
     Active Substance: RIOCIGUAT
  2. TYVASO DPI [Suspect]
     Active Substance: TREPROSTINIL
     Indication: Connective tissue disorder
     Dosage: 32 ?G, QID
     Dates: start: 20241007
  3. TYVASO DPI [Suspect]
     Active Substance: TREPROSTINIL
     Indication: Pulmonary arterial hypertension
  4. TYVASO DPI [Suspect]
     Active Substance: TREPROSTINIL
     Indication: Connective tissue disorder
     Dates: start: 2025, end: 202502
  5. UPTRAVI [Suspect]
     Active Substance: SELEXIPAG
  6. OMEPRAZOLE [Concomitant]
     Active Substance: OMEPRAZOLE
  7. MINERALS\VITAMINS [Concomitant]
     Active Substance: MINERALS\VITAMINS
  8. PSYLLIUM [Concomitant]
     Active Substance: PLANTAGO SEED
  9. ELIQUIS [Concomitant]
     Active Substance: APIXABAN
  10. FLUOXETINE HYDROCHLORIDE [Concomitant]
     Active Substance: FLUOXETINE HYDROCHLORIDE
  11. ALBUTEROL SULFATE [Concomitant]
     Active Substance: ALBUTEROL SULFATE
  12. DILTIAZEM HYDROCHLORIDE [Concomitant]
     Active Substance: DILTIAZEM HYDROCHLORIDE
  13. LOMOTIL [Concomitant]
     Active Substance: ATROPINE SULFATE\DIPHENOXYLATE HYDROCHLORIDE
  14. BUMETANIDE [Concomitant]
     Active Substance: BUMETANIDE
  15. OXYGEN [Concomitant]
     Active Substance: OXYGEN
  16. SPIRONOLACTONE [Concomitant]
     Active Substance: SPIRONOLACTONE
  17. LUMIGAN [Concomitant]
     Active Substance: BIMATOPROST
  18. SOTATERCEPT [Concomitant]
     Active Substance: SOTATERCEPT

REACTIONS (6)
  - Dyspnoea [None]
  - Somnolence [None]
  - Drug ineffective [None]
  - Mobility decreased [None]
  - Cough [None]
  - Throat irritation [None]
